FAERS Safety Report 7928604-X (Version None)
Quarter: 2011Q4

REPORT INFORMATION
  Report Type: 
  Country: None (occurrence: None)
  Receive Date: 20111118
  Receipt Date: 20111114
  Transmission Date: 20120403
  Serious: Yes (Hospitalization)
  Sender: FDA-Public Use
  Company Number: US-CELGENEUS-163-AB007-11111986

PATIENT
  Sex: Female
  Weight: 69.008 kg

DRUGS (8)
  1. ABRAXANE [Suspect]
     Dosage: 125 MILLIGRAM/SQ. METER
     Route: 041
     Dates: start: 20111110
  2. FENTANYL-100 [Concomitant]
     Indication: PAIN
     Dosage: 25 MICROGRAM
     Route: 061
     Dates: start: 20111031
  3. GEMCITABINE [Suspect]
     Dosage: 1000 MILLIGRAM/SQ. METER
     Route: 041
     Dates: start: 20111110
  4. ONDANSETRON HYDROCHLORIDE [Concomitant]
     Indication: VOMITING
  5. ONDANSETRON HYDROCHLORIDE [Concomitant]
     Indication: NAUSEA
     Dosage: 8 MILLIGRAM
     Route: 048
     Dates: start: 20111108
  6. DULCOLAX [Concomitant]
     Indication: CONSTIPATION
     Dosage: 3 TABLET
     Route: 048
     Dates: start: 20111028
  7. ACETAMINOPHEN AND HYDROCODONE BITARTRATE [Concomitant]
     Indication: PAIN
     Dosage: 15 MILLILITER
     Route: 048
     Dates: start: 20111031
  8. OMEPRAZOLE [Concomitant]
     Dosage: 20 MILLIGRAM
     Route: 048
     Dates: start: 20111003

REACTIONS (4)
  - PLEURAL EFFUSION [None]
  - NAUSEA [None]
  - DEHYDRATION [None]
  - VOMITING [None]
